FAERS Safety Report 5567205-8 (Version None)
Quarter: 2007Q4

REPORT INFORMATION
  Report Type: 
  Country: None (occurrence: None)
  Receive Date: 20071219
  Receipt Date: 20071214
  Transmission Date: 20080405
  Serious: Yes (Disabling, Other)
  Sender: FDA-Public Use
  Company Number: CH-WYE-G00774307

PATIENT
  Age: 78 Year
  Sex: Male

DRUGS (5)
  1. EFFEXOR [Suspect]
     Route: 048
     Dates: start: 20060101
  2. EUTHYROX [Concomitant]
     Indication: HYPOTHYROIDISM
     Route: 048
     Dates: start: 20050101
  3. RIVOTRIL [Concomitant]
     Indication: TREMOR
     Route: 048
     Dates: start: 20050101
  4. LITHIOFOR [Suspect]
     Indication: BIPOLAR DISORDER
     Route: 048
     Dates: start: 19850101
  5. LORAZEPAM [Concomitant]
     Indication: ANXIETY DISORDER
     Route: 048
     Dates: start: 20050101

REACTIONS (8)
  - COGNITIVE DISORDER [None]
  - CONDITION AGGRAVATED [None]
  - CREATININE RENAL CLEARANCE DECREASED [None]
  - DEPRESSED MOOD [None]
  - MALNUTRITION [None]
  - MUSCULAR WEAKNESS [None]
  - SOCIAL AVOIDANT BEHAVIOUR [None]
  - TREMOR [None]
